FAERS Safety Report 7180341-8 (Version None)
Quarter: 2010Q4

REPORT INFORMATION
  Report Type: 
  Country: None (occurrence: None)
  Receive Date: 20101221
  Receipt Date: 20101216
  Transmission Date: 20110411
  Serious: Yes (Other)
  Sender: FDA-Public Use
  Company Number: A0898446A

PATIENT
  Sex: Female

DRUGS (7)
  1. TYKERB [Suspect]
     Dosage: 1250MG PER DAY
     Route: 048
     Dates: start: 20091028, end: 20101117
  2. DECADRON [Concomitant]
  3. NEURONTIN [Concomitant]
  4. ATIVAN [Concomitant]
  5. DILAUDID [Concomitant]
  6. NEXIUM [Concomitant]
  7. IMOVANE [Concomitant]

REACTIONS (4)
  - BREAST CANCER [None]
  - METASTASES TO NECK [None]
  - SALIVARY GLAND NEOPLASM [None]
  - VIITH NERVE PARALYSIS [None]
